FAERS Safety Report 16623656 (Version 1)
Quarter: 2019Q3

REPORT INFORMATION
  Report Type: Spontaneous
  Country: DE (occurrence: DE)
  Receive Date: 20190724
  Receipt Date: 20190724
  Transmission Date: 20191004
  Serious: Yes (Death, Hospitalization)
  Sender: FDA-Public Use
  Company Number: DE-PFIZER INC-2019311552

PATIENT
  Age: 66 Year
  Sex: Female

DRUGS (8)
  1. PANTOPRAZOLE [Concomitant]
     Active Substance: PANTOPRAZOLE
     Dosage: 40 MG, 1X/DAY (QD)
     Route: 065
  2. KALIUM [POTASSIUM] [Concomitant]
     Dosage: NK MG, 1-0.5-0-0
     Route: 065
  3. AMIODARONE HCL [Suspect]
     Active Substance: AMIODARONE HYDROCHLORIDE
     Dosage: 200 MG, QD
     Route: 065
  4. PHENPROCOUMON [Concomitant]
     Active Substance: PHENPROCOUMON
     Dosage: 3 MG
     Route: 065
  5. METAMIZOLE [Concomitant]
     Active Substance: METAMIZOLE
     Dosage: 500 MG, 3X/DAY (TID)
     Route: 065
  6. VALSARTAN. [Suspect]
     Active Substance: VALSARTAN
     Dosage: NK MG, QUESTIONABLE INTAKE
     Route: 065
  7. FUROSEMIDE. [Suspect]
     Active Substance: FUROSEMIDE
     Dosage: 40 MG 2-1-0-0
     Route: 065
  8. XIPAMIDE [Suspect]
     Active Substance: XIPAMIDE
     Dosage: 10 MG, QD
     Route: 065

REACTIONS (5)
  - Hypotension [Unknown]
  - General physical health deterioration [Unknown]
  - Death [Fatal]
  - Fatigue [Unknown]
  - Dizziness [Unknown]
